FAERS Safety Report 8611886-9 (Version None)
Quarter: 2012Q3

REPORT INFORMATION
  Report Type: 
  Country: None (occurrence: None)
  Receive Date: 20120822
  Receipt Date: 20120813
  Transmission Date: 20120928
  Serious: Yes (Hospitalization)
  Sender: FDA-Public Use
  Company Number: FR-BRISTOL-MYERS SQUIBB COMPANY-16856122

PATIENT
  Age: 56 Year
  Sex: Male

DRUGS (7)
  1. PARAPLATIN [Suspect]
     Indication: LUNG ADENOCARCINOMA
     Dosage: FORMULATION-PARAPLATINE POWDER FOR SOL FOR INJ TOTAL DOSE:1.064MG
     Route: 042
     Dates: start: 20050613, end: 20050704
  2. GEMZAR [Suspect]
     Indication: LUNG ADENOCARCINOMA
     Dosage: FORMULATION-GEMZAR 1000 MG POWDER FOR SOL FOR INF TOTAL DOSE:11.826MG
     Route: 042
     Dates: start: 20050204, end: 20050401
  3. CISPLATIN [Suspect]
     Indication: LUNG ADENOCARCINOMA
     Dosage: TOTAL DOSE:456MG
     Route: 042
     Dates: start: 20050204, end: 20050324
  4. PAXENE [Suspect]
     Indication: LUNG ADENOCARCINOMA
     Dosage: PAXENE 6MG/ML SOLUTION FOR INF TOTAL DOSE:746MG
     Route: 042
     Dates: start: 20050613, end: 20050704
  5. FORADIL [Concomitant]
     Indication: CHRONIC OBSTRUCTIVE PULMONARY DISEASE
     Dosage: FREQUCNY-ONE IN MRNG AND EVENG
     Route: 055
  6. FLUTICASONE PROPIONATE/SALMETEROL [Concomitant]
     Indication: CHRONIC OBSTRUCTIVE PULMONARY DISEASE
     Dosage: 1DF=2 INHALATION.FORMULATION-500/50 POWDER FOR INHALATION FREQUENCY-ONE IN MRNG AND EVEG
     Route: 055
  7. ACETAMINOPHEN [Concomitant]
     Indication: PAIN
     Dosage: 1G TABS
     Route: 048

REACTIONS (1)
  - ACUTE MYELOID LEUKAEMIA [None]
